FAERS Safety Report 8954032 (Version 2)
Quarter: 2013Q1

REPORT INFORMATION
  Report Type: Spontaneous
  Country: CL (occurrence: CL)
  Receive Date: 20121207
  Receipt Date: 20130328
  Transmission Date: 20140127
  Serious: Yes (Other)
  Sender: FDA-Public Use
  Company Number: CL-BRISTOL-MYERS SQUIBB COMPANY-17164096

PATIENT
  Age: 46 Year
  Sex: Female

DRUGS (5)
  1. ORENCIA [Suspect]
     Indication: RHEUMATOID ARTHRITIS
     Dates: start: 20111125
  2. EUTIROX [Concomitant]
  3. METFORMIN [Concomitant]
  4. LEVOFLOXACIN [Concomitant]
  5. GUTRON [Concomitant]

REACTIONS (2)
  - Pneumonitis [Unknown]
  - Anaemia [Unknown]
